FAERS Safety Report 7304075-1 (Version None)
Quarter: 2011Q1

REPORT INFORMATION
  Report Type: 
  Country: None (occurrence: None)
  Receive Date: 20110221
  Receipt Date: 20110210
  Transmission Date: 20110831
  Serious: Yes (Other)
  Sender: FDA-Public Use
  Company Number: PHHY2011US11736

PATIENT
  Sex: Male

DRUGS (2)
  1. ANTIBIOTICS [Concomitant]
     Dosage: UNK
  2. GILENYA [Suspect]
     Dosage: 0.5 MG, DAILY
     Route: 048

REACTIONS (2)
  - TUNNEL VISION [None]
  - TREATMENT NONCOMPLIANCE [None]
